FAERS Safety Report 7325233-6 (Version None)
Quarter: 2011Q1

REPORT INFORMATION
  Report Type: 
  Country: None (occurrence: None)
  Receive Date: 20110302
  Receipt Date: 20110224
  Transmission Date: 20110831
  Serious: Yes (Other)
  Sender: FDA-Public Use
  Company Number: US-PFIZER INC-2011041337

PATIENT
  Sex: Female
  Weight: 79.365 kg

DRUGS (2)
  1. GEODON [Suspect]
     Indication: ANXIETY
     Dosage: 20 MG, 2X/DAY
     Route: 048
     Dates: start: 20090101
  2. METOPROLOL [Concomitant]
     Dosage: UNK

REACTIONS (6)
  - DISCOMFORT [None]
  - HYPERTENSION [None]
  - WEIGHT INCREASED [None]
  - WITHDRAWAL SYNDROME [None]
  - NERVOUSNESS [None]
  - DEPRESSED MOOD [None]
